FAERS Safety Report 5156257-5 (Version None)
Quarter: 2006Q4

REPORT INFORMATION
  Report Type: 
  Country: None (occurrence: None)
  Receive Date: 20061114
  Receipt Date: 20061107
  Transmission Date: 20070319
  Serious: Yes (Other)
  Sender: FDA-Public Use
  Company Number: 2006AP000892

PATIENT
  Age: 65 Year
  Sex: Female

DRUGS (12)
  1. CLOPIDOGREL [Suspect]
     Indication: CORONARY ARTERIAL STENT INSERTION
     Dosage: 75 MG;AM;PO
     Route: 048
     Dates: start: 20060930, end: 20061003
  2. MORPHINE SULFATE [Concomitant]
  3. 0XYCODONE [Concomitant]
  4. PREGABALIN [Concomitant]
  5. ALPRAZOLAM [Concomitant]
  6. DULOXETINE [Concomitant]
  7. HYDROCHLORIDE [Concomitant]
  8. INSULIN GLARGINE [Concomitant]
  9. INSULIN LISPRO [Concomitant]
  10. GLYCERYL TRINITRATE [Concomitant]
  11. ROSUVASTATIN [Concomitant]
  12. DOCUSATE SODIUM [Concomitant]

REACTIONS (3)
  - INCREASED TENDENCY TO BRUISE [None]
  - PHARMACEUTICAL PRODUCT COMPLAINT [None]
  - RED BLOOD CELL MORPHOLOGY ABNORMAL [None]
